FAERS Safety Report 6376741-6 (Version None)
Quarter: 2009Q3

REPORT INFORMATION
  Report Type: 
  Country: None (occurrence: None)
  Receive Date: 20090924
  Receipt Date: 20090924
  Transmission Date: 20100115
  Serious: No
  Sender: FDA-Public Use
  Company Number: None

PATIENT
  Sex: Female
  Weight: 70.3075 kg

DRUGS (1)
  1. ISOSORBIDE MONONITRATE [Suspect]
     Indication: PALPITATIONS
     Dosage: 30 1 A DAY BY MOUTH
     Route: 048
     Dates: start: 20090912, end: 20090913

REACTIONS (4)
  - CONTUSION [None]
  - DIZZINESS [None]
  - FALL [None]
  - PAIN [None]
